FAERS Safety Report 4513706-0 (Version None)
Quarter: 2004Q4

REPORT INFORMATION
  Report Type: 
  Country: None (occurrence: None)
  Receive Date: 20041130
  Receipt Date: 20040827
  Transmission Date: 20050328
  Serious: No
  Sender: FDA-Public Use
  Company Number: US-GLAXOSMITHKLINE-A0523820A

PATIENT
  Age: 52 Year
  Sex: Female

DRUGS (11)
  1. WELLBUTRIN XL [Suspect]
     Indication: DEPRESSION
     Dosage: 300MG PER DAY
     Route: 048
     Dates: start: 20040101
  2. PAXIL CR [Concomitant]
  3. METFORMIN HCL [Concomitant]
  4. HUMULIN 70/30 [Concomitant]
  5. MONOPRIL [Concomitant]
  6. LOPID [Concomitant]
  7. LIPITOR [Concomitant]
  8. DYAZIDE [Concomitant]
  9. SINGULAIR [Concomitant]
  10. ALBUTEROL [Concomitant]
  11. ASPIRIN [Concomitant]

REACTIONS (3)
  - BLOOD GLUCOSE INCREASED [None]
  - DEPRESSION [None]
  - DRUG INEFFECTIVE [None]
